FAERS Safety Report 5257672-1 (Version None)
Quarter: 2007Q1

REPORT INFORMATION
  Report Type: 
  Country: None (occurrence: None)
  Receive Date: 20070307
  Receipt Date: 20070129
  Transmission Date: 20070707
  Serious: Yes (Other)
  Sender: FDA-Public Use
  Company Number: 2007UW03847

PATIENT
  Age: 67 Year
  Sex: Female

DRUGS (2)
  1. ARIMIDEX [Suspect]
     Indication: BREAST CANCER FEMALE
     Route: 048
     Dates: start: 20060901
  2. SYNTHROID [Concomitant]
     Route: 048

REACTIONS (10)
  - ABNORMAL SENSATION IN EYE [None]
  - ARTHROPATHY [None]
  - BONE SCAN ABNORMAL [None]
  - DIZZINESS [None]
  - EYELID PTOSIS [None]
  - HEADACHE [None]
  - NAUSEA [None]
  - PAIN [None]
  - PARAESTHESIA [None]
  - VEIN DISORDER [None]
